FAERS Safety Report 5276121-0 (Version None)
Quarter: 2007Q1

REPORT INFORMATION
  Report Type: 
  Country: None (occurrence: None)
  Receive Date: 20070326
  Receipt Date: 20060821
  Transmission Date: 20070707
  Serious: Yes (Death)
  Sender: FDA-Public Use
  Company Number: AR-JNJFOC-20060803128

PATIENT
  Sex: Male

DRUGS (6)
  1. TMC114 [Suspect]
     Route: 048
  2. TMC114 [Suspect]
     Indication: HIV INFECTION
     Route: 048
  3. RITONAVIR [Suspect]
     Indication: HIV INFECTION
     Route: 048
  4. ENFUVIRTIDE [Concomitant]
     Indication: HIV INFECTION
     Route: 058
  5. TENOFOVIR DISOPROXIL FUMARATE [Concomitant]
     Indication: HIV INFECTION
     Route: 048
  6. OXCARBAZEPINE [Concomitant]
     Indication: CONVULSION PROPHYLAXIS
     Route: 048

REACTIONS (1)
  - SUDDEN DEATH [None]
